FAERS Safety Report 19195302 (Version 3)
Quarter: 2021Q2

REPORT INFORMATION
  Report Type: Spontaneous
  Country: GR (occurrence: GR)
  Receive Date: 20210429
  Receipt Date: 20210525
  Transmission Date: 20210717
  Serious: Yes (Death, Hospitalization, Other)
  Sender: FDA-Public Use
  Company Number: GR-009507513-2104GRC007795

PATIENT
  Age: 57 Year
  Sex: Female

DRUGS (4)
  1. DAPTOMYCIN. [Suspect]
     Active Substance: DAPTOMYCIN
     Indication: DEVICE RELATED INFECTION
     Dosage: 700 MG AS SINGLE DAILY DOSE (8 MG/KG OF BODY WEIGHT)
  2. DAPTOMYCIN. [Suspect]
     Active Substance: DAPTOMYCIN
     Indication: STAPHYLOCOCCAL INFECTION
  3. VANCOMYCIN [Concomitant]
     Active Substance: VANCOMYCIN
     Indication: DEVICE RELATED INFECTION
     Dosage: UNK
  4. VANCOMYCIN [Concomitant]
     Active Substance: VANCOMYCIN
     Indication: STAPHYLOCOCCAL INFECTION

REACTIONS (2)
  - Cholestatic liver injury [Fatal]
  - Off label use [Unknown]
